FAERS Safety Report 9014820 (Version 1)
Quarter: 2013Q1

REPORT INFORMATION
  Report Type: Spontaneous
  Country: GB (occurrence: GB)
  Receive Date: 20130116
  Receipt Date: 20130116
  Transmission Date: 20140127
  Serious: Yes (Life-Threatening, Hospitalization)
  Sender: FDA-Public Use
  Company Number: GB-009507513-1301GBR004811

PATIENT
  Age: 91 Year
  Sex: 0

DRUGS (21)
  1. ERTAPENEM SODIUM [Suspect]
     Indication: URINARY TRACT INFECTION
     Dosage: 1 G, QD
     Route: 042
     Dates: start: 20110330, end: 20110331
  2. PENICILLIN G [Suspect]
     Indication: PNEUMONIA
     Dosage: 1.2 G, UNK
     Dates: start: 20110218
  3. PENICILLIN G [Suspect]
     Dosage: 600 MG, UNK
     Route: 041
     Dates: start: 20110130
  4. CIPROFLOXACIN [Suspect]
     Indication: UROSEPSIS
     Dosage: 400 MG, BID
     Route: 041
     Dates: start: 20110324
  5. CIPROFLOXACIN [Suspect]
     Indication: UROSEPSIS
     Dosage: 500 MG, BID
     Route: 048
     Dates: start: 20110325, end: 20110329
  6. DOXYCYCLINE [Suspect]
     Indication: CHRONIC OBSTRUCTIVE PULMONARY DISEASE
     Dosage: 100 MG, BID
     Route: 048
     Dates: start: 20100804
  7. FLOXACILLIN [Suspect]
     Dosage: 250 MG, QID
     Route: 048
     Dates: start: 20090710, end: 20090715
  8. LEVOFLOXACIN [Suspect]
     Indication: PNEUMONIA
     Dosage: 500 MG, BID
     Dates: start: 20110218, end: 20110225
  9. LEVOFLOXACIN [Suspect]
     Indication: RENAL FAILURE ACUTE
     Dosage: 500 MG, BID
     Route: 048
     Dates: start: 20110130, end: 20110206
  10. ADCAL-D3 [Concomitant]
     Dosage: 1 DF, BID
     Route: 048
  11. ASPIRIN [Concomitant]
     Dosage: 75 MG, QD
     Route: 048
  12. ATORVASTATIN [Concomitant]
     Dosage: 40 MG, QD
     Route: 048
  13. BUMETANIDE [Concomitant]
     Dosage: 2 MG, BID
     Route: 048
  14. IPRATROPIUM BROMIDE [Concomitant]
     Dosage: UNK, QID
  15. ACETAMINOPHEN [Concomitant]
     Dosage: UNK, QID
     Route: 048
  16. QUETIAPINE FUMARATE [Concomitant]
     Dosage: 25 MG, QD
     Route: 048
  17. ALBUTEROL [Concomitant]
     Dosage: 5 MG, QID
  18. SENNA [Concomitant]
     Dosage: 15 MG, QD
     Route: 048
  19. THIAMINE [Concomitant]
     Dosage: 100 MG, TID
     Route: 048
  20. UNIPHYLLIN [Concomitant]
     Dosage: 200 MG, BID
     Route: 048
  21. VITAMIN B (UNSPECIFIED) [Concomitant]
     Dosage: 1 DF, QD
     Route: 048

REACTIONS (7)
  - Pneumonia [Unknown]
  - Urosepsis [Unknown]
  - Clostridium difficile infection [Recovered/Resolved]
  - Confusional state [Unknown]
  - Dysuria [Unknown]
  - Diarrhoea [Unknown]
  - Hypotension [Unknown]
